FAERS Safety Report 10536969 (Version 3)
Quarter: 2015Q1

REPORT INFORMATION
  Report Type: Report from Study
  Country: JP (occurrence: JP)
  Receive Date: 20141022
  Receipt Date: 20150220
  Transmission Date: 20150720
  Serious: Yes (Hospitalization)
  Sender: FDA-Public Use
  Company Number: JP-ASTRAZENECA-2014SE79229

PATIENT
  Age: 75 Year
  Sex: Female
  Weight: 39 kg

DRUGS (11)
  1. FOLIAMIN [Concomitant]
     Active Substance: FOLIC ACID
     Indication: RHEUMATOID ARTHRITIS
     Route: 048
  2. KETOPROFEN. [Concomitant]
     Active Substance: KETOPROFEN
     Indication: RHEUMATOID ARTHRITIS
     Dosage: 1 DF -  AS REQUIRED
     Route: 062
  3. CALONAL [Concomitant]
     Active Substance: ACETAMINOPHEN
     Indication: OSTEOARTHRITIS
     Dosage: 1800 MG - DAILY NUMBER OF SEPARATE DOSAGES UNKNOWN
     Route: 048
     Dates: start: 20140208
  4. ACTEMRA [Suspect]
     Active Substance: TOCILIZUMAB
     Indication: RHEUMATOID ARTHRITIS
     Route: 041
  5. CALONAL [Concomitant]
     Active Substance: ACETAMINOPHEN
     Indication: OSTEOARTHRITIS
     Dosage: 2400MG - DAILY NUMBER OF SEPARATE DOSAGES UNKNOWN
     Route: 048
     Dates: end: 20140207
  6. LEXAPRO [Concomitant]
     Active Substance: ESCITALOPRAM OXALATE
     Indication: RHEUMATOID ARTHRITIS
     Route: 048
  7. NEXIUM [Suspect]
     Active Substance: ESOMEPRAZOLE MAGNESIUM
     Indication: PROPHYLAXIS AGAINST GASTROINTESTINAL ULCER
     Route: 048
     Dates: start: 20130713
  8. CELECOX [Concomitant]
     Active Substance: CELECOXIB
     Indication: RHEUMATOID ARTHRITIS
     Dosage: 200 MG - DAILY, NUMBER OF SEPERATE DOSAGES UNKNOWN
     Route: 048
     Dates: end: 20131207
  9. PURSENNID [Concomitant]
     Active Substance: SENNOSIDES A AND B
     Indication: CONSTIPATION
     Dosage: 24 MG - DAILY  NUMBER OF SEPERATE DOSAGES UNKNOWN
     Route: 048
  10. MUCOSTA [Concomitant]
     Active Substance: REBAMIPIDE
     Indication: PEPTIC ULCER
     Dosage: 300 MG DAILY- NUMBER OF SEPARATE DOSAGES UNKNOWN
     Route: 048
  11. INFLUENZA HA VACCINE [Concomitant]
     Active Substance: INFLUENZA VIRUS VACCINE
     Indication: ANTIVIRAL PROPHYLAXIS
     Dosage: 0.5 - ML DAILY NUMBER OF SEPARATE DOSAGES UNKNOWN
     Route: 065
     Dates: start: 20131109, end: 20131109

REACTIONS (4)
  - Wrist fracture [Recovering/Resolving]
  - Hypertension [Recovering/Resolving]
  - Urinary tract infection [Recovered/Resolved]
  - Fall [Unknown]

NARRATIVE: CASE EVENT DATE: 20130811
